FAERS Safety Report 8209996-3 (Version None)
Quarter: 2012Q1

REPORT INFORMATION
  Report Type: 
  Country: None (occurrence: None)
  Receive Date: 20120314
  Receipt Date: 20111012
  Transmission Date: 20120608
  Serious: No
  Sender: FDA-Public Use
  Company Number: US-ASTRAZENECA-2011SE61448

PATIENT
  Age: 71 Year
  Sex: Female
  Weight: 81.2 kg

DRUGS (10)
  1. FUROSEMIDE [Concomitant]
     Indication: DIURETIC THERAPY
  2. RANITIDINE [Concomitant]
     Indication: HIATUS HERNIA
  3. ZALATAN [Concomitant]
     Indication: GLAUCOMA
  4. TOPROL-XL [Suspect]
     Indication: ANGINA PECTORIS
     Route: 048
  5. CRESTOR [Interacting]
     Indication: BLOOD CHOLESTEROL ABNORMAL
     Route: 048
  6. RANEXA [Concomitant]
     Indication: ANGINA PECTORIS
  7. ZETIA [Interacting]
     Route: 065
  8. IMDUR [Concomitant]
     Indication: ANGINA PECTORIS
  9. NORVASC [Concomitant]
     Indication: ANGINA PECTORIS
  10. CRESTOR [Interacting]
     Route: 048

REACTIONS (6)
  - WEIGHT DECREASED [None]
  - BODY HEIGHT DECREASED [None]
  - PARAESTHESIA [None]
  - DRUG INTERACTION [None]
  - RESTLESSNESS [None]
  - OFF LABEL USE [None]
